FAERS Safety Report 24953696 (Version 2)
Quarter: 2025Q1

REPORT INFORMATION
  Report Type: Report from Study
  Country: US (occurrence: US)
  Receive Date: 20250211
  Receipt Date: 20250312
  Transmission Date: 20250409
  Serious: Yes (Hospitalization, Other)
  Sender: TAIHO ONCOLOGY INC
  Company Number: US-OTSUKA-2023_001213

PATIENT
  Age: 66 Year
  Sex: Male
  Weight: 79 kg

DRUGS (2)
  1. INQOVI [Suspect]
     Active Substance: CEDAZURIDINE\DECITABINE
     Indication: Myelodysplastic syndrome
     Dosage: 135 MG (35 MG DECITABINE AND 100 MG CEDAZURIDINE), ONCE DAILY (QD) ON DAYS 1-5 OF EACH 28 DAY CYCLE
     Route: 048
     Dates: start: 20230205
  2. VENCLEXTA [Concomitant]
     Active Substance: VENETOCLAX
     Indication: Myelodysplastic syndrome
     Route: 048
     Dates: start: 20241213

REACTIONS (11)
  - Limb injury [Unknown]
  - Fall [Unknown]
  - Haemoglobin decreased [Unknown]
  - Anaemia [Unknown]
  - Cytopenia [Unknown]
  - Platelet count decreased [Unknown]
  - Feeling abnormal [Unknown]
  - Biopsy [Unknown]
  - Fatigue [Unknown]
  - Nausea [Unknown]
  - Diarrhoea [Unknown]
